FAERS Safety Report 15215006 (Version 1)
Quarter: 2018Q3

REPORT INFORMATION
  Report Type: Spontaneous
  Country: BR (occurrence: BR)
  Receive Date: 20180730
  Receipt Date: 20180730
  Transmission Date: 20181010
  Serious: Yes (Hospitalization, Other)
  Sender: FDA-Public Use
  Company Number: BR-BAYER-2018-138717

PATIENT
  Age: 81 Year
  Sex: Female

DRUGS (2)
  1. ASPIRIN. [Suspect]
     Active Substance: ASPIRIN
     Indication: CARDIOVASCULAR EVENT PROPHYLAXIS
     Dosage: 100 MG, QD
     Route: 048
     Dates: start: 2017, end: 20180321
  2. ASPIRIN. [Suspect]
     Active Substance: ASPIRIN
     Indication: CARDIOVASCULAR EVENT PROPHYLAXIS
     Dosage: 100 MG, QD
     Route: 048
     Dates: start: 20170801, end: 201708

REACTIONS (8)
  - Fall [Recovering/Resolving]
  - Nausea [Recovering/Resolving]
  - Subarachnoid haemorrhage [Recovering/Resolving]
  - General physical health deterioration [Recovering/Resolving]
  - Craniocerebral injury [Recovering/Resolving]
  - Ischaemic stroke [None]
  - Vomiting [Recovering/Resolving]
  - Cholecystitis [Recovering/Resolving]

NARRATIVE: CASE EVENT DATE: 20170802
